FAERS Safety Report 5738637-X (Version None)
Quarter: 2008Q2

REPORT INFORMATION
  Report Type: 
  Country: None (occurrence: None)
  Receive Date: 20080515
  Receipt Date: 20080508
  Transmission Date: 20081010
  Serious: Yes (Other)
  Sender: FDA-Public Use
  Company Number: PHEH2008US04467

PATIENT
  Age: 71 Year
  Sex: Female
  Weight: 63.038 kg

DRUGS (13)
  1. MOTRIN [Concomitant]
  2. GLUCOPHAGE [Concomitant]
  3. MAGNESIUM [Concomitant]
  4. ALBUTEROL [Concomitant]
  5. LOPRESSOR [Concomitant]
  6. ALLEGRA [Concomitant]
  7. PAXIL [Concomitant]
  8. NASONEX [Concomitant]
  9. MEVACOR [Concomitant]
  10. DARVOCET-N [Concomitant]
  11. ELAVIL [Concomitant]
  12. HYDROCHLOROTHIAZIDE [Concomitant]
  13. RECLAST [Suspect]
     Indication: OSTEOPOROSIS
     Dosage: UNK ONCE
     Route: 042
     Dates: start: 20080424

REACTIONS (4)
  - ATRIAL TACHYCARDIA [None]
  - BLOOD PRESSURE ABNORMAL [None]
  - BONE PAIN [None]
  - CHEST PAIN [None]
